FAERS Safety Report 10402870 (Version 1)
Quarter: 2014Q3

REPORT INFORMATION
  Report Type: Spontaneous
  Country: US (occurrence: None)
  Receive Date: 20140821
  Receipt Date: 20140821
  Transmission Date: 20150326
  Serious: Yes (Disabling)
  Sender: FDA-Public Use
  Company Number: None

PATIENT
  Age: 65 Year
  Sex: Female
  Weight: 72.58 kg

DRUGS (1)
  1. PROLIA [Suspect]
     Active Substance: DENOSUMAB
     Indication: OSTEOPOROSIS
     Dosage: SHOT  SHOT EVERY 6 MONTH INTO THE MUSCLE?APRIL TO OCTOBER
     Route: 030

REACTIONS (9)
  - Headache [None]
  - Dry mouth [None]
  - Anorectal disorder [None]
  - Neck pain [None]
  - Pain in extremity [None]
  - Nausea [None]
  - Injection site pain [None]
  - Back pain [None]
  - Stomatitis [None]

NARRATIVE: CASE EVENT DATE: 20140416
